FAERS Safety Report 21403569 (Version 7)
Quarter: 2023Q2

REPORT INFORMATION
  Report Type: Report from Study
  Country: US (occurrence: US)
  Receive Date: 20221003
  Receipt Date: 20230620
  Transmission Date: 20230722
  Serious: Yes (Other)
  Sender: FDA-Public Use
  Company Number: US-XERIS PHARMACEUTICALS-2022XER00254

PATIENT
  Sex: Female
  Weight: 77.098 kg

DRUGS (6)
  1. RECORLEV [Suspect]
     Active Substance: LEVOKETOCONAZOLE
     Indication: Cushing^s syndrome
     Dosage: 1 TABLET (150 MG), 1X/DAY AT NIGHT
     Route: 048
     Dates: start: 20220701
  2. RECORLEV [Suspect]
     Active Substance: LEVOKETOCONAZOLE
     Dosage: 1 TABLET (150 MG), 2X/DAY
     Route: 048
  3. UNSPECIFIED INGREDIENT [Suspect]
     Active Substance: UNSPECIFIED INGREDIENT
     Indication: Thyroid cancer
     Dosage: UNK
  4. INSULIN NOS [Concomitant]
     Active Substance: INSULIN NOS
     Dosage: DECREASED
  5. CALCIUM [Concomitant]
     Active Substance: CALCIUM
     Dosage: OCCASSIONALLY TAKES 2 HOURS BEFORE OR AFTER RECORLEV
  6. VITAMIN B12 [Concomitant]
     Active Substance: CYANOCOBALAMIN

REACTIONS (18)
  - Fatigue [Not Recovered/Not Resolved]
  - Mood altered [Not Recovered/Not Resolved]
  - Hunger [Recovering/Resolving]
  - Blood glucose decreased [Not Recovered/Not Resolved]
  - Musculoskeletal discomfort [Recovering/Resolving]
  - Arthralgia [Recovering/Resolving]
  - Sensitivity to weather change [Recovering/Resolving]
  - Somnolence [Recovering/Resolving]
  - Anger [Recovering/Resolving]
  - Anxiety [Recovering/Resolving]
  - Muscle spasms [Unknown]
  - Memory impairment [Unknown]
  - Dizziness [Not Recovered/Not Resolved]
  - Headache [Recovering/Resolving]
  - Insomnia [Recovering/Resolving]
  - Sleep disorder [Recovering/Resolving]
  - Middle insomnia [Unknown]
  - Intentional product use issue [Not Recovered/Not Resolved]

NARRATIVE: CASE EVENT DATE: 20220101
